FAERS Safety Report 5570461-3 (Version None)
Quarter: 2007Q4

REPORT INFORMATION
  Report Type: 
  Country: None (occurrence: None)
  Receive Date: 20071221
  Receipt Date: 20070920
  Transmission Date: 20080405
  Serious: No
  Sender: FDA-Public Use
  Company Number: US-BRISTOL-MYERS SQUIBB COMPANY-13914742

PATIENT
  Age: 48 Year
  Sex: Female
  Weight: 73 kg

DRUGS (15)
  1. ORENCIA [Suspect]
     Indication: RHEUMATOID ARTHRITIS
     Dosage: GIVEN AS INFUSIONS.
     Dates: start: 20070726
  2. MULTI-VITAMIN [Concomitant]
  3. GARLIQUE [Concomitant]
  4. ECOTRIN [Concomitant]
  5. PREDNISONE [Concomitant]
  6. KEPPRA [Concomitant]
  7. PLAQUENIL [Concomitant]
  8. FOLIC ACID [Concomitant]
  9. ULTRACET [Concomitant]
  10. LEXAPRO [Concomitant]
  11. CALTRATE + D [Concomitant]
  12. LUNESTA [Concomitant]
  13. SEROQUEL [Concomitant]
  14. METHOTREXATE [Concomitant]
  15. CATAPRES [Concomitant]

REACTIONS (4)
  - HYPOAESTHESIA [None]
  - PAIN IN EXTREMITY [None]
  - PARAESTHESIA [None]
  - SENSORY DISTURBANCE [None]
